FAERS Safety Report 9279089 (Version 1)
Quarter: 2013Q2

REPORT INFORMATION
  Report Type: Spontaneous
  Country: US (occurrence: US)
  Receive Date: 20130508
  Receipt Date: 20130508
  Transmission Date: 20140414
  Serious: No
  Sender: FDA-Public Use
  Company Number: US-B.I. PHARMACEUTICALS,INC./RIDGEFIELD-2013-BI-12529BP

PATIENT
  Age: 96 Year
  Sex: Female
  Weight: 47 kg

DRUGS (1)
  1. SPIRIVA [Suspect]
     Indication: CHRONIC OBSTRUCTIVE PULMONARY DISEASE
     Dosage: 18 MCG
     Route: 055
     Dates: start: 2011, end: 20130425

REACTIONS (3)
  - Ocular hyperaemia [Recovered/Resolved]
  - Hallucination [Not Recovered/Not Resolved]
  - Blindness transient [Recovered/Resolved]
